FAERS Safety Report 14675107 (Version 5)
Quarter: 2018Q3

REPORT INFORMATION
  Report Type: Report from Study
  Country: None (occurrence: CO)
  Receive Date: 20180323
  Receipt Date: 20180706
  Transmission Date: 20181010
  Serious: Yes (Other)
  Sender: FDA-Public Use
  Company Number: CO-ABBVIE-17K-036-1881229-00

PATIENT
  Age: 48 Year
  Sex: Female
  Weight: 66 kg

DRUGS (7)
  1. PREGABALIN. [Concomitant]
     Active Substance: PREGABALIN
     Indication: PRODUCT USED FOR UNKNOWN INDICATION
  2. CALCITRIOL. [Concomitant]
     Active Substance: CALCITRIOL
     Indication: PRODUCT USED FOR UNKNOWN INDICATION
  3. HUMIRA [Suspect]
     Active Substance: ADALIMUMAB
     Indication: ANKYLOSING SPONDYLITIS
     Route: 058
     Dates: start: 20121227, end: 20170108
  4. HUMIRA [Suspect]
     Active Substance: ADALIMUMAB
     Route: 058
     Dates: start: 2017
  5. CYCLOSPORINE. [Concomitant]
     Active Substance: CYCLOSPORINE
     Indication: PRODUCT USED FOR UNKNOWN INDICATION
  6. DULOXETINA [Concomitant]
     Active Substance: DULOXETINE
     Indication: PRODUCT USED FOR UNKNOWN INDICATION
  7. METHOTREXATE. [Concomitant]
     Active Substance: METHOTREXATE
     Indication: PRODUCT USED FOR UNKNOWN INDICATION

REACTIONS (21)
  - Intervertebral disc protrusion [Not Recovered/Not Resolved]
  - Arthralgia [Not Recovered/Not Resolved]
  - Headache [Recovering/Resolving]
  - Spinal pain [Unknown]
  - Haemoptysis [Not Recovered/Not Resolved]
  - Dermatitis [Recovered/Resolved]
  - Balance disorder [Unknown]
  - Pain in extremity [Not Recovered/Not Resolved]
  - Renal failure [Recovering/Resolving]
  - Eye oedema [Not Recovered/Not Resolved]
  - Alopecia [Not Recovered/Not Resolved]
  - Neck pain [Recovered/Resolved]
  - Arthralgia [Unknown]
  - Hyperuricaemia [Not Recovered/Not Resolved]
  - Mobility decreased [Not Recovered/Not Resolved]
  - Vaginal infection [Not Recovered/Not Resolved]
  - Productive cough [Recovering/Resolving]
  - Fall [Not Recovered/Not Resolved]
  - Vulvovaginal discomfort [Unknown]
  - Neck pain [Unknown]
  - Influenza [Not Recovered/Not Resolved]

NARRATIVE: CASE EVENT DATE: 201602
